FAERS Safety Report 13299958 (Version 1)
Quarter: 2017Q1

REPORT INFORMATION
  Report Type: Spontaneous
  Country: IN (occurrence: IN)
  Receive Date: 20170306
  Receipt Date: 20170306
  Transmission Date: 20170428
  Serious: Yes (Hospitalization)
  Sender: FDA-Public Use
  Company Number: IN-IMPAX LABORATORIES, INC-2017-IPXL-00496

PATIENT
  Age: 18 Year
  Sex: Male

DRUGS (1)
  1. CHLOROQUINE PHOSPHATE. [Suspect]
     Active Substance: CHLOROQUINE PHOSPHATE
     Indication: MALARIA
     Dosage: 04 TABLETS OF 600 MG
     Route: 065

REACTIONS (3)
  - Bipolar I disorder [Unknown]
  - Mania [Not Recovered/Not Resolved]
  - Extrapyramidal disorder [Unknown]
